FAERS Safety Report 13819176 (Version 2)
Quarter: 2018Q1

REPORT INFORMATION
  Report Type: Report from Study
  Country: None (occurrence: US)
  Receive Date: 20170731
  Receipt Date: 20180201
  Transmission Date: 20180508
  Serious: No
  Sender: FDA-Public Use
  Company Number: US-EXELIXIS-CABO-17007997

PATIENT
  Age: 56 Year
  Sex: Female
  Weight: 63.76 kg

DRUGS (1)
  1. CABOMETYX [Suspect]
     Active Substance: CABOZANTINIB S-MALATE
     Indication: RENAL CANCER
     Dosage: 40 MG, QD
     Route: 048
     Dates: start: 20161231

REACTIONS (9)
  - Dry throat [Unknown]
  - Abdominal discomfort [Unknown]
  - Pain in extremity [Unknown]
  - Erythema [Recovered/Resolved]
  - Back pain [Unknown]
  - Hypertension [Unknown]
  - Decreased appetite [Unknown]
  - Lichen sclerosus [Unknown]
  - Dysphonia [Unknown]

NARRATIVE: CASE EVENT DATE: 20170124
